FAERS Safety Report 20723387 (Version 1)
Quarter: 2022Q2

REPORT INFORMATION
  Report Type: Other
  Country: US (occurrence: None)
  Receive Date: 20220419
  Receipt Date: 20220419
  Transmission Date: 20220721
  Serious: Yes (Other)
  Sender: FDA-Public Use
  Company Number: US-ROCHE-2807901

PATIENT
  Sex: Female

DRUGS (1)
  1. XELODA [Suspect]
     Active Substance: CAPECITABINE
     Indication: Gastric cancer
     Dosage: 2 TABS ORALLY TWICE A DAY FOR 7 DAYS ON AND 7 DAYS OFF
     Route: 048

REACTIONS (2)
  - Diabetes mellitus [Unknown]
  - Off label use [Unknown]
